FAERS Safety Report 21676963 (Version 1)
Quarter: 2022Q4

REPORT INFORMATION
  Report Type: Report from Study
  Country: US (occurrence: US)
  Receive Date: 20221203
  Receipt Date: 20221203
  Transmission Date: 20230113
  Serious: No
  Sender: FDA-Public Use
  Company Number: US-ABBVIE-4220142

PATIENT
  Sex: Female

DRUGS (1)
  1. VENCLEXTA [Suspect]
     Active Substance: VENETOCLAX
     Indication: Cutaneous T-cell lymphoma
     Dosage: TAKE 2 TABLET(S) BY MOUTH DAILY?FORM STRENGTH: 100
     Route: 048

REACTIONS (2)
  - Illness [Unknown]
  - Hypophagia [Unknown]
